FAERS Safety Report 10795332 (Version 5)
Quarter: 2015Q2

REPORT INFORMATION
  Report Type: Spontaneous
  Country: US (occurrence: US)
  Receive Date: 20150214
  Receipt Date: 20150603
  Transmission Date: 20150821
  Serious: Yes (Other)
  Sender: FDA-Public Use
  Company Number: US-GLAXOSMITHKLINE-A1072141A

PATIENT

DRUGS (1)
  1. VENTOLIN HFA [Suspect]
     Active Substance: ALBUTEROL SULFATE
     Indication: ASTHMA
     Dosage: 2 PUFF(S), PRN
     Route: 055
     Dates: start: 1996

REACTIONS (5)
  - Dysgeusia [Recovered/Resolved]
  - Dyspnoea [Unknown]
  - Bronchitis bacterial [Not Recovered/Not Resolved]
  - Rib fracture [Unknown]
  - Product quality issue [Unknown]

NARRATIVE: CASE EVENT DATE: 20140428
